FAERS Safety Report 12577497 (Version 1)
Quarter: 2016Q3

REPORT INFORMATION
  Report Type: Report from Study
  Country: US (occurrence: US)
  Receive Date: 20160720
  Receipt Date: 20160720
  Transmission Date: 20161109
  Serious: No
  Sender: FDA-Public Use
  Company Number: US-AMGEN-USASP2016092737

PATIENT
  Age: 58 Year
  Sex: Female

DRUGS (1)
  1. ENBREL [Suspect]
     Active Substance: ETANERCEPT
     Indication: RHEUMATOID ARTHRITIS
     Dosage: 50 MG, QWK
     Route: 065

REACTIONS (8)
  - Eye injury [Unknown]
  - Oropharyngeal pain [Unknown]
  - Fall [Unknown]
  - Eye contusion [Unknown]
  - Eye colour change [Unknown]
  - Swelling [Unknown]
  - Haematoma [Unknown]
  - Mass [Unknown]

NARRATIVE: CASE EVENT DATE: 20160701
